FAERS Safety Report 14825522 (Version 1)
Quarter: 2018Q2

REPORT INFORMATION
  Report Type: Not Available
  Country: US (occurrence: US)
  Receive Date: 20180430
  Receipt Date: 20180430
  Transmission Date: 20180711
  Serious: No
  Sender: FDA-Public Use
  Company Number: US-EPIHEALTH-2017-US-004489

PATIENT
  Age: 51 Year
  Sex: Female

DRUGS (1)
  1. SITAVIG [Suspect]
     Active Substance: ACYCLOVIR
     Dosage: 1 TABLET
     Route: 048
     Dates: start: 20170426, end: 20170426

REACTIONS (3)
  - Mouth swelling [Unknown]
  - Mouth ulceration [Unknown]
  - Oral pain [Unknown]

NARRATIVE: CASE EVENT DATE: 20170426
